FAERS Safety Report 7086624-4 (Version None)
Quarter: 2010Q4

REPORT INFORMATION
  Report Type: 
  Country: None (occurrence: None)
  Receive Date: 20101105
  Receipt Date: 20101102
  Transmission Date: 20110411
  Serious: Yes (Other)
  Sender: FDA-Public Use
  Company Number: CA-CEPHALON-2010001284

PATIENT
  Sex: Female
  Weight: 42 kg

DRUGS (5)
  1. TREANDA [Suspect]
     Indication: NON-HODGKIN'S LYMPHOMA
     Route: 042
     Dates: start: 20090820, end: 20100108
  2. RITUXIMAB [Suspect]
     Indication: NON-HODGKIN'S LYMPHOMA
     Route: 042
     Dates: start: 20090820, end: 20100107
  3. LIPITOR [Concomitant]
  4. DILANTIN [Concomitant]
  5. UNPSECIFIED THERAPEUTIC AGENT [Concomitant]

REACTIONS (1)
  - APLASIA PURE RED CELL [None]
